FAERS Safety Report 21500207 (Version 6)
Quarter: 2024Q1

REPORT INFORMATION
  Report Type: Report from Study
  Country: JP (occurrence: JP)
  Receive Date: 20221024
  Receipt Date: 20240226
  Transmission Date: 20240409
  Serious: Yes (Other)
  Sender: FDA-Public Use
  Company Number: JP-TAKEDA-2022TJP075972

PATIENT
  Age: 1 Year
  Sex: Male

DRUGS (6)
  1. ANTIHEMOPHILIC FACTOR, PEGYLATED (MW 20000) HUMAN SEQUENCE RECOMBINANT [Suspect]
     Active Substance: ANTIHEMOPHILIC FACTOR, PEGYLATED (MW 20000) HUMAN SEQUENCE RECOMBINANT
     Indication: Factor VIII deficiency
     Dosage: UNK UNK, 1/WEEK
     Route: 042
     Dates: start: 20220823
  2. ANTIHEMOPHILIC FACTOR, PEGYLATED (MW 20000) HUMAN SEQUENCE RECOMBINANT [Suspect]
     Active Substance: ANTIHEMOPHILIC FACTOR, PEGYLATED (MW 20000) HUMAN SEQUENCE RECOMBINANT
     Indication: Factor VIII deficiency
     Dosage: UNK UNK, 1/WEEK
     Route: 042
     Dates: start: 20220823
  3. ANTIHEMOPHILIC FACTOR, PEGYLATED (MW 20000) HUMAN SEQUENCE RECOMBINANT [Suspect]
     Active Substance: ANTIHEMOPHILIC FACTOR, PEGYLATED (MW 20000) HUMAN SEQUENCE RECOMBINANT
     Indication: Factor VIII deficiency
     Dosage: UNK UNK, 1/WEEK
     Route: 042
     Dates: start: 20220823
  4. ANTIHEMOPHILIC FACTOR, PEGYLATED (MW 20000) HUMAN SEQUENCE RECOMBINANT [Suspect]
     Active Substance: ANTIHEMOPHILIC FACTOR, PEGYLATED (MW 20000) HUMAN SEQUENCE RECOMBINANT
     Dosage: 750 INTERNATIONAL UNIT, 1/WEEK
     Route: 042
     Dates: start: 20230214, end: 20230214
  5. ANTIHEMOPHILIC FACTOR, PEGYLATED (MW 20000) HUMAN SEQUENCE RECOMBINANT [Suspect]
     Active Substance: ANTIHEMOPHILIC FACTOR, PEGYLATED (MW 20000) HUMAN SEQUENCE RECOMBINANT
     Dosage: 750 INTERNATIONAL UNIT, 1/WEEK
     Route: 042
     Dates: start: 20230214, end: 20230214
  6. ANTIHEMOPHILIC FACTOR, PEGYLATED (MW 20000) HUMAN SEQUENCE RECOMBINANT [Suspect]
     Active Substance: ANTIHEMOPHILIC FACTOR, PEGYLATED (MW 20000) HUMAN SEQUENCE RECOMBINANT
     Dosage: 750 INTERNATIONAL UNIT, 1/WEEK
     Route: 042
     Dates: start: 20230214, end: 20230214

REACTIONS (8)
  - Internal haemorrhage [Unknown]
  - Internal haemorrhage [Recovered/Resolved]
  - Internal haemorrhage [Unknown]
  - Streptococcal infection [Unknown]
  - Respiratory syncytial virus infection [Unknown]
  - Adenovirus infection [Unknown]
  - Hand-foot-and-mouth disease [Unknown]
  - Influenza [Unknown]

NARRATIVE: CASE EVENT DATE: 20230214
